FAERS Safety Report 9702247 (Version 2)
Quarter: 2013Q4

REPORT INFORMATION
  Report Type: Spontaneous
  Country: CA (occurrence: CA)
  Receive Date: 20131121
  Receipt Date: 20131121
  Transmission Date: 20140711
  Serious: Yes (Hospitalization)
  Sender: FDA-Public Use
  Company Number: CA-SA-FABR-1003345

PATIENT
  Age: 36 Year
  Sex: Male
  Weight: 49.9 kg

DRUGS (7)
  1. FABRAZYME [Suspect]
     Indication: FABRY^S DISEASE
     Dosage: 55 MG, Q2W
     Route: 042
  2. FABRAZYME [Suspect]
     Indication: FABRY^S DISEASE
     Dosage: 55 MG, Q2W
     Route: 042
     Dates: start: 201211
  3. FABRAZYME [Suspect]
     Indication: FABRY^S DISEASE
     Dosage: 55 MG, Q2W
     Route: 042
     Dates: start: 201211
  4. DIPHENHYDRAMINE [Concomitant]
     Indication: PREMEDICATION
     Dosage: 25 MG, UNK
  5. PARACETAMOL [Concomitant]
     Indication: PREMEDICATION
     Dosage: 500 MG, UNK
  6. OXYCOCET [Concomitant]
     Dosage: 2 TABLET, TID
  7. REPLAGAL [Concomitant]

REACTIONS (3)
  - Cerebrovascular accident [Recovered/Resolved]
  - Pyrexia [Unknown]
  - Chills [Unknown]
